FAERS Safety Report 6860857-1 (Version None)
Quarter: 2010Q3

REPORT INFORMATION
  Report Type: 
  Country: None (occurrence: None)
  Receive Date: 20100720
  Receipt Date: 20100709
  Transmission Date: 20110219
  Serious: Yes (Other)
  Sender: FDA-Public Use
  Company Number: US-JNJCH-2010012806

PATIENT
  Age: 64 Year
  Sex: Female
  Weight: 49.4 kg

DRUGS (1)
  1. DESITIN CREAMY DIAPER RASH OINTMENT [Suspect]
     Indication: SKIN DISORDER
     Dosage: TEXT:^ONE FINGER TIP^ 2X PER DAY
     Route: 061

REACTIONS (2)
  - APPLICATION SITE BURN [None]
  - APPLICATION SITE VESICLES [None]
